FAERS Safety Report 6307456-8 (Version None)
Quarter: 2009Q3

REPORT INFORMATION
  Report Type: 
  Country: None (occurrence: None)
  Receive Date: 20090813
  Receipt Date: 20090706
  Transmission Date: 20100115
  Serious: No
  Sender: FDA-Public Use
  Company Number: US-BRISTOL-MYERS SQUIBB COMPANY-14690358

PATIENT
  Age: 50 Year
  Sex: Female
  Weight: 84 kg

DRUGS (5)
  1. IXEMPRA KIT [Suspect]
     Indication: BREAST CANCER
     Dosage: IST DOSE 4 WEEKS AGO;DOSE REDUCED ON 01JUL09
     Dates: start: 20090601
  2. LISINOPRIL [Concomitant]
  3. VITAMINS [Concomitant]
  4. VITAMIN D [Concomitant]
  5. CALCIUM [Concomitant]

REACTIONS (7)
  - ABDOMINAL PAIN [None]
  - AGEUSIA [None]
  - CONSTIPATION [None]
  - DIARRHOEA [None]
  - FATIGUE [None]
  - LOCALISED INFECTION [None]
  - PARAESTHESIA [None]
